FAERS Safety Report 19207717 (Version 2)
Quarter: 2021Q2

REPORT INFORMATION
  Report Type: Spontaneous
  Country: US (occurrence: US)
  Receive Date: 20210503
  Receipt Date: 20210616
  Transmission Date: 20210717
  Serious: No
  Sender: FDA-Public Use
  Company Number: US-ORGANON-O2104USA001955

PATIENT
  Age: 31 Year
  Sex: Female
  Weight: 84.81 kg

DRUGS (2)
  1. NEXPLANON [Suspect]
     Active Substance: ETONOGESTREL
     Indication: CONTRACEPTION
     Dosage: 1 IMPLANT FOR 3 YEARS
     Route: 059
     Dates: start: 20210324, end: 20210406
  2. CELEXA [CELECOXIB] [Concomitant]
     Active Substance: CELECOXIB

REACTIONS (4)
  - Implant site erythema [Unknown]
  - Device expulsion [Recovered/Resolved]
  - Implant site swelling [Unknown]
  - Implant site infection [Unknown]

NARRATIVE: CASE EVENT DATE: 2021
